FAERS Safety Report 20448680 (Version 1)
Quarter: 2022Q1

REPORT INFORMATION
  Report Type: Spontaneous
  Country: JP (occurrence: JP)
  Receive Date: 20220209
  Receipt Date: 20220209
  Transmission Date: 20220424
  Serious: Yes (Hospitalization)
  Sender: FDA-Public Use
  Company Number: JP-JNJFOC-20220207375

PATIENT
  Age: 76 Year
  Sex: Female

DRUGS (4)
  1. REMINYL [Suspect]
     Active Substance: GALANTAMINE
     Indication: Dementia Alzheimer^s type
     Route: 048
  2. NILVADIPINE [Concomitant]
     Active Substance: NILVADIPINE
     Indication: Hypertension
     Route: 048
  3. SITAGLIPTIN PHOSPHATE [Concomitant]
     Active Substance: SITAGLIPTIN PHOSPHATE
     Indication: Diabetes mellitus
     Route: 048
  4. ROSUVASTATIN [Concomitant]
     Active Substance: ROSUVASTATIN
     Indication: Dyslipidaemia
     Route: 048

REACTIONS (5)
  - Hypothermia [Recovered/Resolved]
  - Hyperglycaemia [Recovered/Resolved]
  - Hypotension [Recovered/Resolved]
  - Bradycardia [Recovered/Resolved]
  - Overdose [Recovered/Resolved]
